FAERS Safety Report 16623450 (Version 1)
Quarter: 2019Q3

REPORT INFORMATION
  Report Type: Spontaneous
  Country: IN (occurrence: IN)
  Receive Date: 20190724
  Receipt Date: 20190724
  Transmission Date: 20191004
  Serious: Yes (Other)
  Sender: FDA-Public Use
  Company Number: IN-BRISTOL-MYERS SQUIBB COMPANY-BMS-2019-070304

PATIENT
  Age: 2 Year
  Sex: Male

DRUGS (1)
  1. TRIAMCINOLONE ACETONIDE. [Suspect]
     Active Substance: TRIAMCINOLONE ACETONIDE
     Indication: ACARODERMATITIS
     Dosage: UNK UNK, QD
     Route: 030

REACTIONS (3)
  - Injection site atrophy [Not Recovered/Not Resolved]
  - Intentional product use issue [Unknown]
  - Lipodystrophy acquired [Not Recovered/Not Resolved]
